FAERS Safety Report 7582023-7 (Version None)
Quarter: 2011Q2

REPORT INFORMATION
  Report Type: 
  Country: None (occurrence: None)
  Receive Date: 20110630
  Receipt Date: 20110623
  Transmission Date: 20111010
  Serious: No
  Sender: FDA-Public Use
  Company Number: US-BIOGENIDEC-2011BI006765

PATIENT
  Sex: Male

DRUGS (1)
  1. TYSABRI [Suspect]
     Indication: MULTIPLE SCLEROSIS
     Route: 042
     Dates: start: 20110210

REACTIONS (9)
  - DECREASED APPETITE [None]
  - MEMORY IMPAIRMENT [None]
  - WEIGHT DECREASED [None]
  - GAIT DISTURBANCE [None]
  - TREMOR [None]
  - URINARY RETENTION [None]
  - VISUAL IMPAIRMENT [None]
  - WEIGHT INCREASED [None]
  - AGRAPHIA [None]
